FAERS Safety Report 4288227-3 (Version None)
Quarter: 2004Q1

REPORT INFORMATION
  Report Type: 
  Country: None (occurrence: None)
  Receive Date: 20040209
  Receipt Date: 20030909
  Transmission Date: 20041129
  Serious: No
  Sender: FDA-Public Use
  Company Number: US-GLAXOSMITHKLINE-A0425136A

PATIENT
  Sex: Male

DRUGS (3)
  1. PAXIL [Suspect]
     Indication: PANIC DISORDER
     Dosage: 5MG PER DAY
     Route: 048
     Dates: start: 20010913
  2. XANAX [Concomitant]
  3. PROPRANOLOL [Concomitant]

REACTIONS (4)
  - DIZZINESS [None]
  - LIBIDO DECREASED [None]
  - VERTIGO [None]
  - WEIGHT INCREASED [None]
